FAERS Safety Report 4336055-2 (Version None)
Quarter: 2004Q1

REPORT INFORMATION
  Report Type: 
  Country: None (occurrence: None)
  Receive Date: 20040326
  Receipt Date: 20031205
  Transmission Date: 20041129
  Serious: Yes (Hospitalization)
  Sender: FDA-Public Use
  Company Number: US-JNJFOC-20030900959

PATIENT
  Age: 77 Year
  Sex: Male

DRUGS (1)
  1. REMINYL [Suspect]
     Indication: DEMENTIA ALZHEIMER'S TYPE
     Dosage: 8 MG, 1 IN 1 DAY, ORAL
     Route: 048
     Dates: start: 20030903

REACTIONS (4)
  - MEDICATION ERROR [None]
  - NAUSEA [None]
  - TREMOR [None]
  - VOMITING [None]
